FAERS Safety Report 5395007-4 (Version None)
Quarter: 2007Q3

REPORT INFORMATION
  Report Type: 
  Country: None (occurrence: None)
  Receive Date: 20070724
  Receipt Date: 20070713
  Transmission Date: 20080115
  Serious: Yes (Other)
  Sender: FDA-Public Use
  Company Number: DE-JNJFOC-20070202112

PATIENT
  Sex: Male
  Weight: 92 kg

DRUGS (8)
  1. TMC114 [Suspect]
     Route: 048
  2. TMC114 [Suspect]
     Indication: HIV INFECTION
     Route: 048
  3. NORVIR [Suspect]
     Route: 048
  4. NORVIR [Suspect]
     Indication: HIV INFECTION
     Route: 048
  5. FUZEON [Concomitant]
     Indication: HIV INFECTION
     Route: 058
  6. COTRIM [Concomitant]
     Dosage: 400/80
     Route: 065
  7. TRIZIVIR [Concomitant]
     Indication: HIV INFECTION
     Route: 048
  8. VIREAD [Concomitant]
     Indication: HIV INFECTION
     Route: 048

REACTIONS (2)
  - HYPERBILIRUBINAEMIA [None]
  - TRANSAMINASES INCREASED [None]
